FAERS Safety Report 5580290-2 (Version None)
Quarter: 2008Q1

REPORT INFORMATION
  Report Type: 
  Country: None (occurrence: None)
  Receive Date: 20080103
  Receipt Date: 20071230
  Transmission Date: 20080703
  Serious: Yes (Other)
  Sender: FDA-Public Use
  Company Number: D0055557A

PATIENT
  Sex: Female
  Weight: 60 kg

DRUGS (2)
  1. ELONTRIL [Suspect]
     Indication: DEPRESSION
     Dosage: 150MG PER DAY
     Route: 048
  2. MIRTAZAPINE [Concomitant]
     Indication: DEPRESSION
     Route: 048
     Dates: start: 20071101

REACTIONS (4)
  - ANGINA PECTORIS [None]
  - MICTURITION DISORDER [None]
  - URINARY INCONTINENCE [None]
  - URINARY RETENTION [None]
